FAERS Safety Report 22054898 (Version 1)
Quarter: 2023Q1

REPORT INFORMATION
  Report Type: Spontaneous
  Country: US (occurrence: US)
  Receive Date: 20230302
  Receipt Date: 20230302
  Transmission Date: 20230418
  Serious: No
  Sender: FDA-Public Use
  Company Number: US-PFIZER INC-PV202300035688

PATIENT
  Age: 40 Year
  Sex: Female

DRUGS (2)
  1. NURTEC ODT [Suspect]
     Active Substance: RIMEGEPANT SULFATE
     Dosage: 75 MG, AS NEEDED
     Route: 048
     Dates: start: 202106, end: 202112
  2. AJOVY [Concomitant]
     Active Substance: FREMANEZUMAB-VFRM
     Dosage: UNK
     Dates: start: 2022

REACTIONS (3)
  - Exposure during pregnancy [Unknown]
  - Migraine [Unknown]
  - Menstruation irregular [Unknown]
